FAERS Safety Report 7775088-0 (Version None)
Quarter: 2011Q3

REPORT INFORMATION
  Report Type: 
  Country: None (occurrence: None)
  Receive Date: 20110923
  Receipt Date: 20110913
  Transmission Date: 20111222
  Serious: Yes (Death, Other)
  Sender: FDA-Public Use
  Company Number: IT-CELGENEUS-083-20785-10090936

PATIENT

DRUGS (5)
  1. HEPARIN [Concomitant]
     Indication: THROMBOSIS PROPHYLAXIS
     Route: 065
  2. DEXAMETHASONE [Suspect]
     Indication: MULTIPLE MYELOMA
     Route: 065
  3. THALIDOMIDE [Suspect]
     Indication: MULTIPLE MYELOMA
     Dosage: 100 MILLIGRAM
     Route: 048
  4. WARFARIN SODIUM [Concomitant]
     Indication: THROMBOSIS PROPHYLAXIS
     Dosage: 1.25 MILLIGRAM
     Route: 065
  5. THALIDOMIDE [Suspect]
     Dosage: 200 MILLIGRAM
     Route: 048

REACTIONS (14)
  - DEATH [None]
  - EMBOLISM VENOUS [None]
  - BRADYCARDIA [None]
  - NO THERAPEUTIC RESPONSE [None]
  - RASH [None]
  - FATIGUE [None]
  - LEUKOPENIA [None]
  - NEUROPATHY PERIPHERAL [None]
  - WEIGHT INCREASED [None]
  - INFECTION [None]
  - MULTIPLE MYELOMA [None]
  - INSOMNIA [None]
  - CONSTIPATION [None]
  - OEDEMA PERIPHERAL [None]
